FAERS Safety Report 5797435-1 (Version None)
Quarter: 2008Q3

REPORT INFORMATION
  Report Type: 
  Country: None (occurrence: None)
  Receive Date: 20080701
  Receipt Date: 20080616
  Transmission Date: 20090109
  Serious: No
  Sender: FDA-Public Use
  Company Number: US-BOEHRINGER INGELHEIM GMBH, GERMANY-2008-BP-07745BP

PATIENT
  Sex: Female
  Weight: 90 kg

DRUGS (7)
  1. CATAPRES-TTS-1 [Suspect]
     Indication: HYPERTENSION
     Route: 061
  2. DIOVAN [Concomitant]
     Dates: start: 20040501
  3. NORVASC [Concomitant]
     Dates: start: 20080401
  4. PEPCID [Concomitant]
  5. ATENOLOL [Concomitant]
     Dates: start: 19960101
  6. VESICARE [Concomitant]
     Dates: start: 20071001
  7. KCL ER [Concomitant]
     Dates: start: 20071001

REACTIONS (2)
  - PRURITUS [None]
  - RASH [None]
